FAERS Safety Report 8807547 (Version 1)
Quarter: 2012Q4

REPORT INFORMATION
  Report Type: 
  Country: US (occurrence: US)
  Receive Date: 20120925
  Receipt Date: 20120925
  Transmission Date: 20130627
  Serious: Yes (Other)
  Sender: FDA-Public Use
  Company Number: US-PFIZER INC-2012234363

PATIENT
  Sex: Female

DRUGS (2)
  1. ADVIL [Suspect]
     Indication: PAIN
     Dosage: one to two ibuprofen, daily
     Dates: end: 201209
  2. ADVIL [Suspect]
     Dosage: three to four ibuprofen, daily
     Dates: start: 201209

REACTIONS (2)
  - Haemoptysis [Unknown]
  - Drug ineffective [Unknown]
